FAERS Safety Report 4741961-0 (Version None)
Quarter: 2005Q3

REPORT INFORMATION
  Report Type: 
  Country: None (occurrence: None)
  Receive Date: 20050801
  Receipt Date: 20050613
  Transmission Date: 20060218
  Serious: No
  Sender: FDA-Public Use
  Company Number: 2005PV000039

PATIENT
  Age: 64 Year
  Sex: Female
  Weight: 108.8633 kg

DRUGS (14)
  1. BYETTA [Suspect]
     Indication: DIABETES MELLITUS NON-INSULIN-DEPENDENT
     Dosage: 5 UG;BID;SC
     Route: 058
     Dates: start: 20050610, end: 20050612
  2. HUMALOG [Concomitant]
  3. LANTUS [Concomitant]
  4. METFORMIN [Concomitant]
  5. GLIPIZIDE [Concomitant]
  6. CARDIZEM CD [Concomitant]
  7. AVALIDE [Concomitant]
  8. TOPROL-XL [Concomitant]
  9. LIPITOR [Concomitant]
  10. ADVAIR DISKUS 100/50 [Concomitant]
  11. ASPIRIN [Concomitant]
  12. CALCIUM WITH VITAMIN D [Concomitant]
  13. MULTIVITAMIN [Concomitant]
  14. HUMALOG [Concomitant]

REACTIONS (2)
  - BLOOD GLUCOSE INCREASED [None]
  - DECREASED APPETITE [None]
